FAERS Safety Report 7573938-4 (Version None)
Quarter: 2011Q2

REPORT INFORMATION
  Report Type: 
  Country: None (occurrence: None)
  Receive Date: 20110627
  Receipt Date: 20110625
  Transmission Date: 20111010
  Serious: No
  Sender: FDA-Public Use
  Company Number: US-PFIZER INC-2011141334

PATIENT
  Sex: Female
  Weight: 78.458 kg

DRUGS (1)
  1. LYRICA [Suspect]
     Indication: FIBROMYALGIA
     Dosage: UNK
     Route: 048
     Dates: start: 20090801, end: 20090101

REACTIONS (2)
  - EYE DISORDER [None]
  - VISUAL IMPAIRMENT [None]
